FAERS Safety Report 9012466 (Version 1)
Quarter: 2013Q1

REPORT INFORMATION
  Report Type: Spontaneous
  Country: FR (occurrence: FR)
  Receive Date: 20130114
  Receipt Date: 20130114
  Transmission Date: 20140127
  Serious: Yes (Hospitalization)
  Sender: FDA-Public Use
  Company Number: FR-PFIZER INC-2013000316

PATIENT
  Age: 74 Year
  Sex: Female

DRUGS (2)
  1. ALPRAZOLAM [Suspect]
     Dosage: UNK, THREE TIMES PER DAY
  2. XANAX [Concomitant]
     Dosage: UNK, THREE TIMES PER DAY

REACTIONS (2)
  - Gait disturbance [Recovered/Resolved]
  - Fall [Unknown]
